FAERS Safety Report 11322389 (Version 1)
Quarter: 2015Q3

REPORT INFORMATION
  Report Type: Spontaneous
  Country: US (occurrence: None)
  Receive Date: 20150728
  Receipt Date: 20150728
  Transmission Date: 20151125
  Serious: Yes (Other)
  Sender: FDA-Public Use
  Company Number: 001951267A

PATIENT
  Age: 13 Year
  Sex: Male

DRUGS (7)
  1. PROACTIV PLUS PORE TARGETING TREATMENT [Suspect]
     Active Substance: BENZOYL PEROXIDE
     Indication: ACNE
     Dosage: ONCE DERMAL
     Dates: start: 20150611
  2. MULTIVITAMIN [Concomitant]
     Active Substance: VITAMINS
  3. FISH OIL [Concomitant]
     Active Substance: FISH OIL
  4. CALCIUM [Concomitant]
     Active Substance: CALCIUM
  5. PROBIOTICS AND AMINO ACIDS [Concomitant]
  6. PROACTIV PLUS COMPLEXION PERFECTING HYDRATOR [Suspect]
     Active Substance: SALICYLIC ACID
     Indication: ACNE
     Dosage: ONCE DERMAL
     Dates: start: 20150611
  7. PROACTIVPLUS SKIN SMOOTHING EXFOLIATOR [Suspect]
     Active Substance: BENZOYL PEROXIDE
     Indication: ACNE
     Dosage: ONCE DERMAL
     Dates: start: 20150611

REACTIONS (11)
  - Rash [None]
  - Eyelid oedema [None]
  - Dysphagia [None]
  - Drug hypersensitivity [None]
  - Erythema [None]
  - Hypersensitivity [None]
  - Swelling face [None]
  - Skin exfoliation [None]
  - Lip swelling [None]
  - Nasal congestion [None]
  - Pruritus [None]

NARRATIVE: CASE EVENT DATE: 20150613
